FAERS Safety Report 14738612 (Version 4)
Quarter: 2018Q2

REPORT INFORMATION
  Report Type: Spontaneous
  Country: BR (occurrence: BR)
  Receive Date: 20180409
  Receipt Date: 20180612
  Transmission Date: 20180711
  Serious: Yes (Other)
  Sender: FDA-Public Use
  Company Number: BR-PFIZER INC-2018138652

PATIENT
  Age: 77 Year
  Sex: Female

DRUGS (3)
  1. OLMETEC [Suspect]
     Active Substance: OLMESARTAN MEDOXOMIL
     Dosage: 1 DF, DAILY
     Dates: start: 20090818
  2. HYDROCHLOROTHIAZIDE. [Concomitant]
     Active Substance: HYDROCHLOROTHIAZIDE
     Dosage: UNK
  3. NORVASC [Suspect]
     Active Substance: AMLODIPINE BESYLATE
     Dosage: 1 DF, DAILY
     Dates: start: 20090818

REACTIONS (6)
  - Depression [Recovering/Resolving]
  - Feeling abnormal [Recovered/Resolved]
  - Loss of personal independence in daily activities [Recovered/Resolved]
  - Delirium [Recovered/Resolved]
  - Insomnia [Recovered/Resolved]
  - Irritability [Recovered/Resolved]

NARRATIVE: CASE EVENT DATE: 20180401
